FAERS Safety Report 5044555-5 (Version None)
Quarter: 2006Q2

REPORT INFORMATION
  Report Type: 
  Country: None (occurrence: None)
  Receive Date: 20060629
  Receipt Date: 20060616
  Transmission Date: 20061013
  Serious: Yes (Hospitalization)
  Sender: FDA-Public Use
  Company Number: 2006064782

PATIENT
  Age: 53 Year
  Sex: Female

DRUGS (1)
  1. SU-011, 248 (SUNITINIB MALEATE) [Suspect]
     Indication: GASTROINTESTINAL STROMAL TUMOUR
     Dosage: 50 MG (50 MG, 1 IN 1 D), ORAL
     Route: 048
     Dates: start: 20060420, end: 20060515

REACTIONS (2)
  - CONFUSIONAL STATE [None]
  - PYURIA [None]
